FAERS Safety Report 21288219 (Version 1)
Quarter: 2022Q3

REPORT INFORMATION
  Report Type: Spontaneous
  Country: US (occurrence: US)
  Receive Date: 20220902
  Receipt Date: 20220902
  Transmission Date: 20221027
  Serious: No
  Sender: FDA-Public Use
  Company Number: US-ABBVIE-22K-163-4469511-00

PATIENT
  Sex: Male
  Weight: 106.69 kg

DRUGS (12)
  1. DUOPA [Suspect]
     Active Substance: CARBIDOPA\LEVODOPA
     Indication: Product used for unknown indication
     Route: 050
     Dates: start: 2021, end: 2022
  2. DUOPA [Suspect]
     Active Substance: CARBIDOPA\LEVODOPA
  3. NUPROFEN [Concomitant]
     Indication: Pain
  4. DONEPEZIL [Concomitant]
     Active Substance: DONEPEZIL
     Indication: Dementia
  5. CARBIDOPA AND LEVODOPA [Concomitant]
     Active Substance: CARBIDOPA\LEVODOPA
     Indication: Product used for unknown indication
  6. BENADRYL [Concomitant]
     Active Substance: DIPHENHYDRAMINE HYDROCHLORIDE
     Indication: Hypersensitivity
  7. ASPIRIN\SODIUM BICARBONATE [Concomitant]
     Active Substance: ASPIRIN\SODIUM BICARBONATE
     Indication: Product used for unknown indication
  8. NITROSTAT [Concomitant]
     Active Substance: NITROGLYCERIN
     Indication: Product used for unknown indication
  9. XYZAL [Concomitant]
     Active Substance: LEVOCETIRIZINE DIHYDROCHLORIDE
     Indication: Nasal disorder
     Route: 045
  10. MODERNA COVID-19 VACCINE [Concomitant]
     Active Substance: ELASOMERAN
     Indication: COVID-19 immunisation
     Dosage: 1ST DOSE
     Route: 030
  11. MODERNA COVID-19 VACCINE [Concomitant]
     Active Substance: ELASOMERAN
     Dosage: 2ND DOSE
     Route: 030
  12. MODERNA COVID-19 VACCINE [Concomitant]
     Active Substance: ELASOMERAN
     Dosage: BOOSTER DOSE
     Route: 030

REACTIONS (18)
  - Decreased activity [Recovered/Resolved]
  - Limb deformity [Recovered/Resolved]
  - Loss of proprioception [Recovered/Resolved]
  - Gastric disorder [Recovered/Resolved]
  - Sputum retention [Not Recovered/Not Resolved]
  - Muscle disorder [Recovering/Resolving]
  - Foot deformity [Recovering/Resolving]
  - Muscle fatigue [Unknown]
  - Immune system disorder [Not Recovered/Not Resolved]
  - Device issue [Recovered/Resolved]
  - Muscle spasms [Recovering/Resolving]
  - Dystonia [Recovered/Resolved]
  - Muscle spasms [Recovered/Resolved]
  - Dysphonia [Recovering/Resolving]
  - Tremor [Recovered/Resolved]
  - Dyskinesia [Recovered/Resolved]
  - Pain [Recovered/Resolved]
  - Drug level decreased [Unknown]

NARRATIVE: CASE EVENT DATE: 20210101
